FAERS Safety Report 18447822 (Version 1)
Quarter: 2020Q4

REPORT INFORMATION
  Report Type: Spontaneous
  Country: US (occurrence: US)
  Receive Date: 20201030
  Receipt Date: 20201030
  Transmission Date: 20210114
  Serious: Yes (Hospitalization)
  Sender: FDA-Public Use
  Company Number: US-MYLANLABS-2020M1090622

PATIENT
  Age: 77 Year
  Sex: Male

DRUGS (1)
  1. TADALAFIL. [Suspect]
     Active Substance: TADALAFIL
     Indication: URINARY RETENTION
     Dosage: UNK, QD
     Route: 065

REACTIONS (5)
  - Off label use [Unknown]
  - Visual impairment [Unknown]
  - Cerebral haemorrhage [Unknown]
  - Aphasia [Unknown]
  - Extra dose administered [Unknown]
